FAERS Safety Report 17387821 (Version 1)
Quarter: 2020Q1

REPORT INFORMATION
  Report Type: Spontaneous
  Country: US (occurrence: US)
  Receive Date: 20200206
  Receipt Date: 20200206
  Transmission Date: 20200409
  Serious: No
  Sender: FDA-Public Use
  Company Number: US-RADIUS HEALTH INC.-2019US004818

PATIENT
  Age: 89 Year
  Sex: Male

DRUGS (1)
  1. TYMLOS [Suspect]
     Active Substance: ABALOPARATIDE
     Indication: OSTEOPOROSIS POSTMENOPAUSAL
     Dosage: 80 MCG, DAILY
     Dates: start: 20191218

REACTIONS (7)
  - Dizziness [Not Recovered/Not Resolved]
  - Insomnia [Unknown]
  - Blood pressure decreased [Not Recovered/Not Resolved]
  - Peripheral coldness [Unknown]
  - Heart rate increased [Unknown]
  - Off label use [Unknown]
  - Delayed sleep phase [Unknown]

NARRATIVE: CASE EVENT DATE: 20191218
